FAERS Safety Report 13084703 (Version 3)
Quarter: 2017Q1

REPORT INFORMATION
  Report Type: Report from Study
  Country: IT (occurrence: IT)
  Receive Date: 20170104
  Receipt Date: 20170206
  Transmission Date: 20170428
  Serious: Yes (Death)
  Sender: FDA-Public Use
  Company Number: IT-PFIZER INC-2017000254

PATIENT
  Age: 58 Year
  Sex: Male

DRUGS (12)
  1. LONQUEX [Suspect]
     Active Substance: LIPEGFILGRASTIM
     Dosage: 6 MG, TOTAL
     Dates: start: 20160924, end: 20160924
  2. ETOPOSIDE SANDOZ [Suspect]
     Active Substance: ETOPOSIDE
     Dosage: 190 MG, DAILY
     Route: 042
     Dates: start: 20160921, end: 20160923
  3. BACTRIM [Concomitant]
     Active Substance: SULFAMETHOXAZOLE\TRIMETHOPRIM
     Indication: PROPHYLAXIS
     Dosage: 2 DF, TWICE A WEEK; TRIMETROPRIM 160MG + SULFAMETHOXAZOLE 800MG
     Route: 048
     Dates: start: 20160623, end: 20161001
  4. ERYTHROPOIETIN [Concomitant]
     Active Substance: ERYTHROPOIETIN
     Indication: PROPHYLAXIS
     Dosage: UNK
     Route: 058
     Dates: start: 20160705, end: 20161001
  5. ENDOXAN /00021101/ [Suspect]
     Active Substance: CYCLOPHOSPHAMIDE
     Indication: LYMPHOMA
     Dosage: 1400 MG, CYCLIC
     Route: 042
     Dates: start: 20160726, end: 20160921
  6. VINCRISTINA PFIZER ITALIA [Suspect]
     Active Substance: VINCRISTINE
     Dosage: 2 MG, TOTAL
     Route: 042
     Dates: start: 20160921, end: 20160921
  7. VINCRISTINA PFIZER ITALIA [Suspect]
     Active Substance: VINCRISTINE
     Indication: LYMPHOMA
     Dosage: 1 MG, TOTAL
     Route: 042
     Dates: start: 20160726, end: 20160726
  8. LONQUEX [Suspect]
     Active Substance: LIPEGFILGRASTIM
     Indication: NEUTROPENIA
     Dosage: 6 MG, TOTAL
     Route: 058
     Dates: start: 20160729, end: 20160729
  9. ETOPOSIDE SANDOZ [Suspect]
     Active Substance: ETOPOSIDE
     Indication: LYMPHOMA
     Dosage: 190 MG, DAILY
     Route: 042
     Dates: start: 20160726, end: 20160728
  10. ETOPOSIDE SANDOZ [Suspect]
     Active Substance: ETOPOSIDE
     Dosage: 190 MG, DAILY
     Route: 042
     Dates: start: 20160831, end: 20160902
  11. ADRIBLASTINA [Suspect]
     Active Substance: DOXORUBICIN HYDROCHLORIDE
     Indication: LYMPHOMA
     Dosage: 95 MG, CYCLIC
     Route: 042
     Dates: start: 20160726, end: 20160921
  12. VINCRISTINA PFIZER ITALIA [Suspect]
     Active Substance: VINCRISTINE
     Dosage: 1 MG, TOTAL
     Route: 042
     Dates: start: 20160831, end: 20160831

REACTIONS (6)
  - Pyrexia [Fatal]
  - Pneumonia [Fatal]
  - Septic shock [Fatal]
  - Respiratory arrest [Fatal]
  - Diarrhoea [Fatal]
  - Pure white cell aplasia [Fatal]

NARRATIVE: CASE EVENT DATE: 20161001
